FAERS Safety Report 8957145 (Version 2)
Quarter: 2013Q1

REPORT INFORMATION
  Report Type: Spontaneous
  Country: DE (occurrence: DE)
  Receive Date: 20121210
  Receipt Date: 20130221
  Transmission Date: 20140127
  Serious: Yes (Life-Threatening, Hospitalization, Disabling, Other)
  Sender: FDA-Public Use
  Company Number: DE-ROCHE-1165907

PATIENT
  Age: 47 Year
  Sex: Female
  Weight: 82 kg

DRUGS (5)
  1. TOCILIZUMAB [Suspect]
     Indication: RHEUMATOID ARTHRITIS
     Route: 065
     Dates: start: 20120109
  2. TOCILIZUMAB [Suspect]
     Route: 065
     Dates: start: 20120807
  3. TOCILIZUMAB [Suspect]
     Route: 065
     Dates: start: 20120904
  4. TOCILIZUMAB [Suspect]
     Route: 065
     Dates: start: 20121011
  5. TOCILIZUMAB [Suspect]
     Route: 065
     Dates: start: 20121107

REACTIONS (4)
  - Glioblastoma multiforme [Not Recovered/Not Resolved]
  - Epilepsy [Unknown]
  - Hemiparesis [Unknown]
  - Multiple sclerosis [Unknown]
